FAERS Safety Report 22053913 (Version 1)
Quarter: 2023Q1

REPORT INFORMATION
  Report Type: Spontaneous
  Country: KR (occurrence: KR)
  Receive Date: 20230302
  Receipt Date: 20230302
  Transmission Date: 20230417
  Serious: Yes (Disabling)
  Sender: FDA-Public Use
  Company Number: KR-009507513-2302KOR008724

PATIENT
  Sex: Female

DRUGS (1)
  1. KEYTRUDA [Suspect]
     Active Substance: PEMBROLIZUMAB
     Dosage: UNK

REACTIONS (8)
  - Muscular weakness [Unknown]
  - Feeling hot [Unknown]
  - Vomiting [Unknown]
  - Diarrhoea [Unknown]
  - Fall [Unknown]
  - Drug ineffective [Unknown]
  - Adverse event [Unknown]
  - Tumour marker increased [Unknown]
